FAERS Safety Report 8272247-8 (Version None)
Quarter: 2012Q2

REPORT INFORMATION
  Report Type: 
  Country: None (occurrence: None)
  Receive Date: 20120410
  Receipt Date: 20120402
  Transmission Date: 20120825
  Serious: Yes (Death)
  Sender: FDA-Public Use
  Company Number: PHHY2012US029985

PATIENT

DRUGS (1)
  1. AMLODIPINE [Suspect]

REACTIONS (1)
  - CARDIAC ARREST [None]
